FAERS Safety Report 5253050-X (Version None)
Quarter: 2007Q1

REPORT INFORMATION
  Report Type: 
  Country: None (occurrence: None)
  Receive Date: 20061201
  Receipt Date: 20060802
  Transmission Date: 20070707
  Serious: No
  Sender: FDA-Public Use
  Company Number: 2006PV018719

PATIENT
  Age: 57 Year
  Sex: Female
  Weight: 117.9352 kg

DRUGS (3)
  1. BYETTA [Suspect]
     Indication: DIABETES MELLITUS NON-INSULIN-DEPENDENT
     Dosage: 05 MCG; BID; SC
     Route: 058
     Dates: start: 20060731
  2. CYMBALTA [Concomitant]
  3. NEXIUM [Concomitant]

REACTIONS (3)
  - DYSPEPSIA [None]
  - INJECTION SITE ERYTHEMA [None]
  - INJECTION SITE PAIN [None]
